FAERS Safety Report 17257896 (Version 1)
Quarter: 2019Q4

REPORT INFORMATION
  Report Type: Spontaneous
  Country: US (occurrence: US)
  Receive Date: 20191217
  Receipt Date: 20191217
  Transmission Date: 20200122
  Serious: Yes (Hospitalization)
  Sender: FDA-Public Use
  Company Number: None

PATIENT
  Age: 60 Year
  Sex: Male

DRUGS (16)
  1. ACYCLOVIR. [Concomitant]
     Active Substance: ACYCLOVIR
  2. CHLORTHALIDONE. [Concomitant]
     Active Substance: CHLORTHALIDONE
  3. GABAPENTIN. [Concomitant]
     Active Substance: GABAPENTIN
  4. ABACAVIR-DLUTEGRAVIR [Concomitant]
  5. AOTAVASTATIN CALCIUM [Concomitant]
  6. TIZANIDINE HCL [Concomitant]
     Active Substance: TIZANIDINE HYDROCHLORIDE
  7. ASPIRIN. [Concomitant]
     Active Substance: ASPIRIN
  8. BUSPIRONE HCI [Concomitant]
  9. CAPSAICIN. [Concomitant]
     Active Substance: CAPSAICIN
  10. LISINOPRIL. [Concomitant]
     Active Substance: LISINOPRIL
  11. METOPROLOL TARTRATE. [Concomitant]
     Active Substance: METOPROLOL TARTRATE
  12. OMEPRAZOLE. [Concomitant]
     Active Substance: OMEPRAZOLE
  13. OLANZAPINE. [Concomitant]
     Active Substance: OLANZAPINE
  14. LIPITOR [Concomitant]
     Active Substance: ATORVASTATIN CALCIUM
  15. TRIUMEQ [Suspect]
     Active Substance: ABACAVIR SULFATE\DOLUTEGRAVIR SODIUM\LAMIVUDINE
     Indication: HIV INFECTION
     Dosage: ?          OTHER DOSE:600-50-300;?
     Route: 048
     Dates: start: 20150224
  16. ELIQUIS [Concomitant]
     Active Substance: APIXABAN

REACTIONS (2)
  - Dizziness [None]
  - Cardiac disorder [None]

NARRATIVE: CASE EVENT DATE: 20191209
